FAERS Safety Report 18492152 (Version 2)
Quarter: 2021Q3

REPORT INFORMATION
  Report Type: Spontaneous
  Country: US (occurrence: US)
  Receive Date: 20201111
  Receipt Date: 20210702
  Transmission Date: 20211014
  Serious: No
  Sender: FDA-Public Use
  Company Number: US-PFIZER INC-2020438984

PATIENT
  Age: 76 Year
  Sex: Female
  Weight: 60.78 kg

DRUGS (4)
  1. PREMARIN [Suspect]
     Active Substance: ESTROGENS, CONJUGATED
     Indication: VULVOVAGINITIS
     Dosage: 1.25 MG, 1X/DAY
     Route: 048
  2. PREMARIN [Suspect]
     Active Substance: ESTROGENS, CONJUGATED
     Dosage: 0.925MG (0.625 MG AND 0.3 MG TABLET), UNK
     Dates: start: 20210528
  3. PREMARIN [Suspect]
     Active Substance: ESTROGENS, CONJUGATED
     Indication: MENOPAUSAL SYMPTOMS
     Dosage: 1.25 MG, 2X/DAY
     Dates: start: 2012
  4. PREMARIN [Suspect]
     Active Substance: ESTROGENS, CONJUGATED
     Dosage: 1.55 MG, 1X/DAY (1.25 MG + 0.3 MG)
     Route: 048
     Dates: start: 201912

REACTIONS (2)
  - Intentional product use issue [Unknown]
  - Therapeutic product effect incomplete [Unknown]

NARRATIVE: CASE EVENT DATE: 2019
